FAERS Safety Report 20674646 (Version 1)
Quarter: 2022Q2

REPORT INFORMATION
  Report Type: Spontaneous
  Country: US (occurrence: US)
  Receive Date: 20220405
  Receipt Date: 20220405
  Transmission Date: 20220721
  Serious: Yes (Other)
  Sender: FDA-Public Use
  Company Number: US-MLMSERVICE-20220324-3447600-1

PATIENT
  Age: 66 Year
  Sex: Male

DRUGS (2)
  1. SPORANOX [Suspect]
     Active Substance: ITRACONAZOLE
     Indication: Blastomycosis
     Route: 065
  2. SPORANOX [Suspect]
     Active Substance: ITRACONAZOLE
     Indication: Pulmonary blastomycosis
     Route: 065

REACTIONS (2)
  - Cardiac failure [Recovering/Resolving]
  - Weight increased [Recovered/Resolved]
